FAERS Safety Report 7683872-7 (Version None)
Quarter: 2011Q3

REPORT INFORMATION
  Report Type: 
  Country: None (occurrence: None)
  Receive Date: 20110815
  Receipt Date: 20110804
  Transmission Date: 20111222
  Serious: Yes (Other)
  Sender: FDA-Public Use
  Company Number: US-BAYER-201039635NA

PATIENT
  Age: 22 Year
  Sex: Female
  Weight: 65.76 kg

DRUGS (3)
  1. YAZ [Suspect]
     Indication: CONTRACEPTION
     Dosage: UNK
     Dates: end: 20100201
  2. YAZ [Suspect]
  3. YAZ [Suspect]

REACTIONS (5)
  - GALLBLADDER DISORDER [None]
  - PAIN [None]
  - NAUSEA [None]
  - ABDOMINAL DISCOMFORT [None]
  - CHOLECYSTITIS CHRONIC [None]
